FAERS Safety Report 16577068 (Version 1)
Quarter: 2019Q3

REPORT INFORMATION
  Report Type: Spontaneous
  Country: US (occurrence: US)
  Receive Date: 20190715
  Receipt Date: 20190715
  Transmission Date: 20191004
  Serious: Yes (Hospitalization)
  Sender: FDA-Public Use
  Company Number: None

PATIENT
  Sex: Male

DRUGS (1)
  1. NORDITROPIN [Suspect]
     Active Substance: SOMATROPIN
     Indication: CHONDRODYSTROPHY
     Dosage: ?          OTHER FREQUENCY:Q.D 6 TIMES A WEEK;?
     Route: 058

REACTIONS (1)
  - Seizure [None]
